FAERS Safety Report 10337424 (Version 1)
Quarter: 2014Q3

REPORT INFORMATION
  Report Type: Spontaneous
  Country: BR (occurrence: BR)
  Receive Date: 20140724
  Receipt Date: 20140724
  Transmission Date: 20150326
  Serious: Yes (Death, Other)
  Sender: FDA-Public Use
  Company Number: BR-ROCHE-1438023

PATIENT
  Sex: Male

DRUGS (2)
  1. AVASTIN [Suspect]
     Active Substance: BEVACIZUMAB
     Indication: PRODUCT USED FOR UNKNOWN INDICATION
     Route: 065
  2. IRINOTECAN [Suspect]
     Active Substance: IRINOTECAN
     Indication: PRODUCT USED FOR UNKNOWN INDICATION
     Route: 065

REACTIONS (6)
  - Mucosal dryness [Recovered/Resolved]
  - Asthenia [Recovered/Resolved]
  - Intestinal perforation [Recovered/Resolved]
  - Infection [Fatal]
  - Obsessive-compulsive disorder [Recovered/Resolved]
  - Diarrhoea [Recovered/Resolved with Sequelae]
